FAERS Safety Report 4416781-7 (Version None)
Quarter: 2004Q2

REPORT INFORMATION
  Report Type: 
  Country: None (occurrence: None)
  Receive Date: 20040628
  Receipt Date: 20040301
  Transmission Date: 20050107
  Serious: No
  Sender: FDA-Public Use
  Company Number: KII-2004-0007054

PATIENT
  Age: 47 Year
  Sex: Female

DRUGS (1)
  1. SPECTRACEF [Suspect]
     Indication: DRUG USE FOR UNKNOWN INDICATION
     Dosage: 20 MG, BID

REACTIONS (3)
  - ANOREXIA [None]
  - DIARRHOEA [None]
  - DYSPEPSIA [None]
